FAERS Safety Report 4369978-9 (Version None)
Quarter: 2004Q2

REPORT INFORMATION
  Report Type: 
  Country: None (occurrence: None)
  Receive Date: 20040527
  Receipt Date: 20040514
  Transmission Date: 20050107
  Serious: No
  Sender: FDA-Public Use
  Company Number: 2004SE02829

PATIENT
  Age: 49 Year
  Sex: Female

DRUGS (1)
  1. ESOMEPRAZOLE [Suspect]

REACTIONS (3)
  - ASTHENIA [None]
  - HEPATITIS ACUTE [None]
  - HYPERHIDROSIS [None]
